FAERS Safety Report 12248602 (Version 1)
Quarter: 2016Q2

REPORT INFORMATION
  Report Type: Spontaneous
  Country: US (occurrence: US)
  Receive Date: 20160408
  Receipt Date: 20160408
  Transmission Date: 20160815
  Serious: No
  Sender: FDA-Public Use
  Company Number: US-PFIZER INC-2016157507

PATIENT
  Age: 56 Year
  Sex: Female
  Weight: 56 kg

DRUGS (3)
  1. ADVIL [Suspect]
     Active Substance: IBUPROFEN
     Dosage: 800 MG, 2X/DAY
     Dates: start: 20160313, end: 20160313
  2. ADVIL [Suspect]
     Active Substance: IBUPROFEN
     Indication: PAIN
     Dosage: 400 MG, 3X/DAY
  3. ADVIL [Suspect]
     Active Substance: IBUPROFEN
     Indication: PERIARTHRITIS
     Dosage: 800 MG, 3X/DAY
     Dates: end: 20160312

REACTIONS (13)
  - Fluid retention [Not Recovered/Not Resolved]
  - Intentional product misuse [Unknown]
  - Eye swelling [Not Recovered/Not Resolved]
  - Peripheral swelling [Not Recovered/Not Resolved]
  - Weight increased [Not Recovered/Not Resolved]
  - Abdominal discomfort [Not Recovered/Not Resolved]
  - Swelling face [Not Recovered/Not Resolved]
  - Musculoskeletal stiffness [Not Recovered/Not Resolved]
  - Abdominal distension [Not Recovered/Not Resolved]
  - Constipation [Not Recovered/Not Resolved]
  - Muscle tightness [Not Recovered/Not Resolved]
  - Joint swelling [Not Recovered/Not Resolved]
  - Eye oedema [Not Recovered/Not Resolved]

NARRATIVE: CASE EVENT DATE: 20160312
